FAERS Safety Report 8119948-X (Version None)
Quarter: 2012Q1

REPORT INFORMATION
  Report Type: 
  Country: None (occurrence: None)
  Receive Date: 20120207
  Receipt Date: 20120202
  Transmission Date: 20120608
  Serious: No
  Sender: FDA-Public Use
  Company Number: US-BAYER-2012-011649

PATIENT

DRUGS (3)
  1. ALEVE (CAPLET) [Suspect]
     Indication: MIGRAINE
  2. EXCEDRIN [CAFFEINE,PARACETAMOL] [Concomitant]
  3. ACETAMINOPHEN [Concomitant]

REACTIONS (1)
  - MIGRAINE [None]
